FAERS Safety Report 13455054 (Version 3)
Quarter: 2017Q2

REPORT INFORMATION
  Report Type: Report from Study
  Country: US (occurrence: US)
  Receive Date: 20170418
  Receipt Date: 20170504
  Transmission Date: 20170830
  Serious: Yes (Hospitalization, Other)
  Sender: FDA-Public Use
  Company Number: US-GILEAD-2017-0265166

PATIENT
  Age: 42 Year
  Sex: Female

DRUGS (12)
  1. SINGULAIR [Concomitant]
     Active Substance: MONTELUKAST SODIUM
  2. DUONEB [Concomitant]
     Active Substance: ALBUTEROL SULFATE\IPRATROPIUM BROMIDE
  3. OXYCODONE [Concomitant]
     Active Substance: OXYCODONE
  4. METHOTREXATE. [Concomitant]
     Active Substance: METHOTREXATE
  5. TORSEMIDE. [Concomitant]
     Active Substance: TORSEMIDE
  6. SILDENAFIL CITRATE. [Concomitant]
     Active Substance: SILDENAFIL CITRATE
  7. LANTUS [Concomitant]
     Active Substance: INSULIN GLARGINE
  8. FOLIC ACID. [Concomitant]
     Active Substance: FOLIC ACID
  9. SYMBICORT [Concomitant]
     Active Substance: BUDESONIDE\FORMOTEROL FUMARATE DIHYDRATE
  10. AMBRISENTAN [Suspect]
     Active Substance: AMBRISENTAN
     Indication: PRODUCT USED FOR UNKNOWN INDICATION
     Dosage: 10 MG, QD
     Route: 065
  11. ALBUTEROL                          /00139501/ [Concomitant]
     Active Substance: ALBUTEROL
  12. ASA [Concomitant]
     Active Substance: ASPIRIN

REACTIONS (10)
  - Treatment noncompliance [Not Recovered/Not Resolved]
  - Chest pain [Not Recovered/Not Resolved]
  - Oedema [Recovered/Resolved]
  - Oedema peripheral [Not Recovered/Not Resolved]
  - Dyspnoea [Not Recovered/Not Resolved]
  - Asthma [Unknown]
  - Blood glucose increased [Unknown]
  - Cardiac failure [Not Recovered/Not Resolved]
  - Fluid overload [Recovered/Resolved]
  - Peripheral swelling [Not Recovered/Not Resolved]
